FAERS Safety Report 10137035 (Version 1)
Quarter: 2014Q2

REPORT INFORMATION
  Report Type: Spontaneous
  Country: US (occurrence: None)
  Receive Date: 20140428
  Receipt Date: 20140428
  Transmission Date: 20141212
  Serious: Yes (Life-Threatening, Other)
  Sender: FDA-Public Use
  Company Number: None

PATIENT
  Age: 62 Year
  Sex: Female

DRUGS (1)
  1. CLONAZEPAM [Suspect]
     Indication: BENIGN NEOPLASM OF SKIN
     Dosage: 0.5MG, 5X1DAY, ORAL
     Route: 048
     Dates: start: 201312, end: 201304

REACTIONS (3)
  - Anxiety [None]
  - Drug effect decreased [None]
  - Impaired driving ability [None]
